FAERS Safety Report 6203244-1 (Version None)
Quarter: 2009Q2

REPORT INFORMATION
  Report Type: 
  Country: None (occurrence: None)
  Receive Date: 20090527
  Receipt Date: 20090512
  Transmission Date: 20091009
  Serious: Yes (Death, Other)
  Sender: FDA-Public Use
  Company Number: GB-ROCHE-629247

PATIENT
  Age: 28 Year
  Sex: Female
  Weight: 52 kg

DRUGS (7)
  1. ISOTRETINOIN [Suspect]
     Indication: ACNE
     Route: 048
     Dates: start: 20080403
  2. ISOTRETINOIN [Suspect]
     Route: 048
  3. ISOTRETINOIN [Suspect]
     Dosage: STOPPED DUE TO HYPERCHOLESTEROLEMIA.
     Route: 048
  4. ISOTRETINOIN [Suspect]
     Route: 048
     Dates: start: 20080925
  5. DIANETTE [Concomitant]
  6. LYMECYCLINE [Concomitant]
  7. PAROXETINE HCL [Concomitant]
     Indication: DEPRESSION

REACTIONS (38)
  - ALOPECIA [None]
  - COMPLETED SUICIDE [None]
  - DEPRESSION [None]
  - DIZZINESS [None]
  - DRY EYE [None]
  - DRY MOUTH [None]
  - DRY SKIN [None]
  - DRY THROAT [None]
  - EPISTAXIS [None]
  - FLUSHING [None]
  - GINGIVAL DISCOLOURATION [None]
  - GINGIVAL RECESSION [None]
  - HAIR COLOUR CHANGES [None]
  - HYPERCHOLESTEROLAEMIA [None]
  - HYPERHIDROSIS [None]
  - HYPOAESTHESIA ORAL [None]
  - LIP DRY [None]
  - MENSTRUAL DISORDER [None]
  - MUSCLE SPASMS [None]
  - MUSCULAR WEAKNESS [None]
  - NAIL DISORDER [None]
  - NASAL DRYNESS [None]
  - ONYCHOCLASIS [None]
  - PAIN [None]
  - PAIN IN EXTREMITY [None]
  - PARAESTHESIA [None]
  - PERIPHERAL COLDNESS [None]
  - PRURITUS [None]
  - SKIN ATROPHY [None]
  - SKIN DISCOLOURATION [None]
  - SKIN ODOUR ABNORMAL [None]
  - SKIN WRINKLING [None]
  - TENSION HEADACHE [None]
  - TOOTH DISCOLOURATION [None]
  - TOOTHACHE [None]
  - VEIN DISORDER [None]
  - VISION BLURRED [None]
  - WITHDRAWAL SYNDROME [None]
